FAERS Safety Report 7952856-3 (Version None)
Quarter: 2011Q4

REPORT INFORMATION
  Report Type: 
  Country: None (occurrence: None)
  Receive Date: 20111201
  Receipt Date: 20111123
  Transmission Date: 20120403
  Serious: No
  Sender: FDA-Public Use
  Company Number: US-CELGENEUS-163-21880-11111093

PATIENT
  Sex: Male
  Weight: 93.524 kg

DRUGS (16)
  1. MILK THISTLE [Concomitant]
     Route: 065
  2. UROXATRAL [Concomitant]
     Route: 065
  3. COQ10 [Concomitant]
     Route: 065
  4. DECADRON [Concomitant]
     Route: 065
  5. NEXIUM [Concomitant]
     Route: 065
  6. CAT'S CLAW [Concomitant]
     Route: 065
  7. IRON [Concomitant]
     Route: 065
  8. AVODART [Concomitant]
     Route: 065
  9. GLUCO/CHON [Concomitant]
     Route: 065
  10. WARFARIN SODIUM [Concomitant]
     Route: 065
  11. ASPIRIN [Concomitant]
     Route: 065
  12. METOPROLOL [Concomitant]
     Route: 065
  13. REVLIMID [Suspect]
     Indication: MULTIPLE MYELOMA
     Dosage: 25 MILLIGRAM
     Route: 048
     Dates: start: 20081208
  14. VITAMIN B-12 [Concomitant]
     Route: 065
  15. MULTI [Concomitant]
     Route: 065
  16. POTASSIUM ACETATE [Concomitant]
     Route: 065

REACTIONS (4)
  - BRONCHITIS [None]
  - ANAEMIA [None]
  - FATIGUE [None]
  - GINGIVAL BLEEDING [None]
